FAERS Safety Report 8446323-0 (Version None)
Quarter: 2012Q2

REPORT INFORMATION
  Report Type: 
  Country: None (occurrence: None)
  Receive Date: 20120618
  Receipt Date: 20120404
  Transmission Date: 20120825
  Serious: Yes (Hospitalization, Other)
  Sender: FDA-Public Use
  Company Number: US-PFIZER INC-2012042772

PATIENT
  Sex: Female
  Weight: 96.145 kg

DRUGS (10)
  1. PROTONIX [Concomitant]
     Dosage: UNK
  2. METHOTREXATE SODIUM [Suspect]
  3. SYNTHROID [Concomitant]
     Dosage: UNK
  4. NORVASC [Concomitant]
     Dosage: UNK
  5. RESTORIL [Concomitant]
     Dosage: UNK
  6. ENBREL [Suspect]
     Indication: ANKYLOSING SPONDYLITIS
     Dosage: 50 MG, QWK
     Route: 058
     Dates: start: 20080501, end: 20120101
  7. PREMARIN [Concomitant]
     Dosage: UNK
  8. ENBREL [Suspect]
     Indication: RHEUMATOID ARTHRITIS
  9. CELEXA [Concomitant]
     Dosage: UNK
  10. ARAVA [Concomitant]
     Dosage: UNK

REACTIONS (42)
  - CARDIAC MURMUR [None]
  - PYREXIA [None]
  - DECREASED APPETITE [None]
  - TINNITUS [None]
  - FUNGAL SEPSIS [None]
  - FOOT OPERATION [None]
  - DEHYDRATION [None]
  - GOITRE [None]
  - CHILLS [None]
  - FATIGUE [None]
  - RENAL CYST [None]
  - DEPRESSION [None]
  - PALPITATIONS [None]
  - ABDOMINAL PAIN [None]
  - HEADACHE [None]
  - MYALGIA [None]
  - HYPOALBUMINAEMIA [None]
  - NECK PAIN [None]
  - INFLUENZA LIKE ILLNESS [None]
  - ANXIETY [None]
  - DIARRHOEA [None]
  - HIP ARTHROPLASTY [None]
  - WRIST FRACTURE [None]
  - DRUG HYPERSENSITIVITY [None]
  - HYPERHIDROSIS [None]
  - INSOMNIA [None]
  - CONTUSION [None]
  - OEDEMA PERIPHERAL [None]
  - OESOPHAGITIS [None]
  - AMNESIA [None]
  - MUSCULOSKELETAL STIFFNESS [None]
  - CHOLECYSTITIS [None]
  - HEPATIC STEATOSIS [None]
  - KNEE ARTHROPLASTY [None]
  - TRANSAMINASES INCREASED [None]
  - NAUSEA [None]
  - GASTROINTESTINAL SOUNDS ABNORMAL [None]
  - DIZZINESS [None]
  - BACK PAIN [None]
  - ARTHRALGIA [None]
  - JOINT STIFFNESS [None]
  - MUSCULAR WEAKNESS [None]
